FAERS Safety Report 5205706-2 (Version None)
Quarter: 2007Q1

REPORT INFORMATION
  Report Type: 
  Country: None (occurrence: None)
  Receive Date: 20070105
  Receipt Date: 20070105
  Transmission Date: 20070707
  Serious: Yes (Life-Threatening, Hospitalization)
  Sender: FDA-Public Use
  Company Number: None

PATIENT
  Age: 18 Year
  Sex: Female

DRUGS (2)
  1. KARIVA [Suspect]
     Indication: ORAL CONTRACEPTION
     Dosage: DAILY PO
     Route: 048
     Dates: start: 20061214, end: 20061228
  2. . [Concomitant]

REACTIONS (5)
  - HAEMORRHAGE INTRACRANIAL [None]
  - HEADACHE [None]
  - INTRACRANIAL VENOUS SINUS THROMBOSIS [None]
  - MALAISE [None]
  - NAUSEA [None]
